FAERS Safety Report 19552113 (Version 1)
Quarter: 2021Q3

REPORT INFORMATION
  Report Type: Other
  Country: US (occurrence: US)
  Receive Date: 20210714
  Receipt Date: 20210714
  Transmission Date: 20211014
  Serious: Yes (Other)
  Sender: FDA-Public Use
  Company Number: US-ROCHE-2867104

PATIENT
  Sex: Female

DRUGS (23)
  1. ZELBORAF [Suspect]
     Active Substance: VEMURAFENIB
     Indication: THYROID CANCER
     Dosage: TAKE 4 TABLET(S) BY MOUTH TWICE A DAY
     Route: 048
     Dates: start: 20201124
  2. CLOPIDOGREL [Concomitant]
     Active Substance: CLOPIDOGREL BISULFATE
  3. LEVOTHYROXINE. [Concomitant]
     Active Substance: LEVOTHYROXINE
     Dosage: 25 MCG TABLET, TAKE 1 TABLET BY MOUTH DAILY BEFORE BREAKFAST
  4. RIVAROXABAN [Concomitant]
     Active Substance: RIVAROXABAN
  5. LENVATINIB [Concomitant]
     Active Substance: LENVATINIB
  6. AMLODIPINE [Concomitant]
     Active Substance: AMLODIPINE BESYLATE
     Dosage: MY MOUTH
  7. METOPROLOL TARTRATE. [Concomitant]
     Active Substance: METOPROLOL TARTRATE
  8. GELCLAIR [HYALURONATE SODIUM;POVIDONE] [Concomitant]
  9. BENZONATATE. [Concomitant]
     Active Substance: BENZONATATE
     Dosage: 100 MG BY MOUTH EVERY 8 HOURS AS NEEDED
  10. CITALOPRAM [Concomitant]
     Active Substance: CITALOPRAM HYDROBROMIDE
  11. DOCUSATE SODIUM. [Concomitant]
     Active Substance: DOCUSATE SODIUM
  12. LORATADINE. [Concomitant]
     Active Substance: LORATADINE
     Route: 048
  13. PANTOPRAZOLE [Concomitant]
     Active Substance: PANTOPRAZOLE
  14. ACETAMINOPHEN. [Concomitant]
     Active Substance: ACETAMINOPHEN
     Dosage: 167MG/5 ML?TAKE 400 MG BY MOUTH
     Route: 048
  15. CETRIZINE [Concomitant]
     Active Substance: CETIRIZINE HYDROCHLORIDE
     Dosage: BY MOUTH
  16. METOPROLOL TARTRATE. [Concomitant]
     Active Substance: METOPROLOL TARTRATE
     Dosage: 75 MG BY MOUTH 2 TIMES DAILY.
     Route: 048
  17. ALBUTEROL. [Concomitant]
     Active Substance: ALBUTEROL
     Indication: WHEEZING
     Dosage: INHALE 2 PUFFS INTO LUNGS EVERY 6 HOURS
  18. ATORVASTATIN [Concomitant]
     Active Substance: ATORVASTATIN
     Dosage: BY MOUTH
  19. MUCINEX [Concomitant]
     Active Substance: GUAIFENESIN
     Dosage: 100 MG/5 ML TAKE MOUTH
     Route: 048
     Dates: start: 20200827
  20. LOPERAMIDE [Concomitant]
     Active Substance: LOPERAMIDE
  21. LORAZEPAM. [Concomitant]
     Active Substance: LORAZEPAM
     Indication: ANXIETY
     Dosage: AT BEDTIME
     Route: 048
  22. LEVOTHYROXINE. [Concomitant]
     Active Substance: LEVOTHYROXINE
     Dosage: 75 MCG TABLET, TAKE 1 TABLET BY MOUTH DAILY BEFORE BREAKFAST
  23. NITROGLYCERIN. [Concomitant]
     Active Substance: NITROGLYCERIN
     Indication: CHEST PAIN

REACTIONS (1)
  - Bone cancer [Unknown]
